FAERS Safety Report 7940881-8 (Version None)
Quarter: 2011Q4

REPORT INFORMATION
  Report Type: 
  Country: None (occurrence: None)
  Receive Date: 20111128
  Receipt Date: 20111117
  Transmission Date: 20120403
  Serious: Yes (Hospitalization)
  Sender: FDA-Public Use
  Company Number: JP-JNJFOC-20110711928

PATIENT
  Sex: Female
  Weight: 50 kg

DRUGS (44)
  1. REMICADE [Suspect]
     Indication: RHEUMATOID ARTHRITIS
     Dosage: 2ND DOSE ON UNSPECIFIED DATE
     Route: 042
  2. METHOTREXATE [Suspect]
     Indication: RHEUMATOID ARTHRITIS
     Route: 048
     Dates: start: 20100801, end: 20101201
  3. LANSOPRAZOLE [Concomitant]
     Route: 048
     Dates: start: 20110201, end: 20110601
  4. RABEPRAZOLE SODIUM [Concomitant]
     Route: 048
     Dates: start: 20101001, end: 20110301
  5. ALFAROL [Concomitant]
     Route: 065
     Dates: start: 20110801
  6. FOLIC ACID [Concomitant]
     Indication: FOLATE DEFICIENCY
     Route: 048
     Dates: start: 20110501, end: 20110530
  7. ISOSORBIDE DINITRATE [Concomitant]
     Route: 048
     Dates: start: 20110501, end: 20110601
  8. MUCOSOLVAN [Concomitant]
     Route: 048
     Dates: start: 20110201, end: 20110201
  9. EVISTA [Concomitant]
     Route: 065
     Dates: start: 20110801
  10. PREDNISONE TAB [Concomitant]
     Route: 048
     Dates: start: 20110624, end: 20110704
  11. SULFAMETHOXAZOLE AND TRIMETHOPRIM [Concomitant]
     Route: 048
     Dates: start: 20110705
  12. MOBIC [Concomitant]
     Route: 048
     Dates: start: 20110801
  13. MOBIC [Concomitant]
     Route: 048
     Dates: start: 20101001, end: 20110301
  14. ALENDRONATE SODIUM [Concomitant]
     Route: 048
     Dates: start: 20100801, end: 20110201
  15. SUCRALFATE [Concomitant]
     Route: 048
     Dates: start: 20110201, end: 20110401
  16. REMICADE [Suspect]
     Route: 042
     Dates: start: 20110411
  17. LANSOPRAZOLE [Concomitant]
     Indication: GASTROOESOPHAGEAL REFLUX DISEASE
     Route: 048
     Dates: start: 20110801
  18. PREDNISONE TAB [Concomitant]
     Route: 048
     Dates: start: 20110705
  19. PREDNISONE TAB [Concomitant]
     Route: 048
     Dates: start: 20110330, end: 20110522
  20. HYALEIN [Concomitant]
     Route: 031
     Dates: start: 20100801, end: 20110201
  21. LOXONIN [Concomitant]
     Route: 048
     Dates: start: 20101001, end: 20110401
  22. MAGNESIUM HYDROXIDE TAB [Concomitant]
     Route: 048
     Dates: start: 20110201, end: 20110401
  23. VOLTAREN [Concomitant]
     Route: 065
     Dates: start: 20110301, end: 20110401
  24. REMICADE [Suspect]
     Route: 042
     Dates: end: 20110602
  25. METHOTREXATE [Suspect]
     Route: 048
     Dates: start: 20110411, end: 20110602
  26. CLINORIL [Concomitant]
     Indication: RHEUMATOID ARTHRITIS
     Route: 048
     Dates: start: 20110401, end: 20110522
  27. PREDNISONE TAB [Concomitant]
     Indication: RHEUMATOID ARTHRITIS
     Route: 048
     Dates: start: 20110619, end: 20110623
  28. PREDNISONE TAB [Concomitant]
     Route: 048
     Dates: start: 20110523, end: 20110618
  29. MOBIC [Concomitant]
     Route: 048
     Dates: end: 20100901
  30. CELECOXIB [Concomitant]
     Route: 048
     Dates: start: 20101201, end: 20110301
  31. MOTILIUM [Concomitant]
     Route: 048
     Dates: start: 20110201, end: 20110201
  32. SULFAMETHOXAZOLE AND TRIMETHOPRIM [Concomitant]
     Route: 048
     Dates: start: 20110601, end: 20110704
  33. MOBIC [Concomitant]
     Route: 048
     Dates: start: 20110501, end: 20110601
  34. MOHRUS TAPE L [Concomitant]
     Route: 065
     Dates: start: 20100801, end: 20101201
  35. VIVIANT [Concomitant]
     Route: 048
     Dates: start: 20101201, end: 20101201
  36. PROGRAF [Concomitant]
     Route: 048
     Dates: start: 20110101, end: 20110301
  37. CLARITHROMYCIN [Concomitant]
     Route: 048
     Dates: start: 20110201, end: 20110201
  38. COLCHICINE [Concomitant]
     Route: 065
     Dates: end: 20110301
  39. REMICADE [Suspect]
     Dosage: 3RD DOSE
     Route: 042
     Dates: start: 20110523
  40. LASIX [Concomitant]
     Indication: HYPERTENSION
     Route: 048
     Dates: start: 20110401, end: 20110501
  41. DILTIAZEM HCL [Concomitant]
     Indication: HYPERTENSION
     Route: 048
     Dates: start: 20110425, end: 20110522
  42. EDIROL [Concomitant]
     Route: 048
     Dates: start: 20110501, end: 20110601
  43. ALL OTHER THERAPEUTIC PRODUCTS [Concomitant]
     Route: 048
     Dates: start: 20110201, end: 20110201
  44. AVELOX [Concomitant]
     Route: 065
     Dates: start: 20110601, end: 20110601

REACTIONS (1)
  - PNEUMOCYSTIS JIROVECI PNEUMONIA [None]
